FAERS Safety Report 5257734-9 (Version None)
Quarter: 2007Q1

REPORT INFORMATION
  Report Type: 
  Country: None (occurrence: None)
  Receive Date: 20070307
  Receipt Date: 20070223
  Transmission Date: 20070707
  Serious: Yes (Hospitalization, Other)
  Sender: FDA-Public Use
  Company Number: GB-JNJFOC-20061200982

PATIENT
  Age: 43 Year
  Sex: Male

DRUGS (12)
  1. DOXIL [Suspect]
     Indication: BURKITT'S LYMPHOMA
     Route: 042
  2. CYCLOPHOSPHAMIDE [Suspect]
     Indication: BURKITT'S LYMPHOMA
  3. METHOTREXATE [Suspect]
     Indication: BURKITT'S LYMPHOMA
  4. VINCRISTINE [Suspect]
     Indication: BURKITT'S LYMPHOMA
  5. CYTARABINE [Suspect]
     Indication: BURKITT'S LYMPHOMA
  6. HYDROCORTISONE [Suspect]
     Indication: BURKITT'S LYMPHOMA
  7. PREDNISOLONE [Suspect]
     Indication: BURKITT'S LYMPHOMA
  8. SAQUINAVIR [Suspect]
     Indication: ACQUIRED IMMUNODEFICIENCY SYNDROME
  9. RITONAVIR [Suspect]
     Indication: ACQUIRED IMMUNODEFICIENCY SYNDROME
  10. SULFAMETHOXAZOLE [Suspect]
     Indication: DRUG USE FOR UNKNOWN INDICATION
  11. TRIMETHOPRIM [Suspect]
     Indication: DRUG USE FOR UNKNOWN INDICATION
  12. CO TRIMOXAZOLE [Concomitant]
     Indication: PNEUMOCYSTIS JIROVECI INFECTION

REACTIONS (3)
  - MULTIPLE FRACTURES [None]
  - OSTEONECROSIS [None]
  - OSTEOPOROSIS [None]
